FAERS Safety Report 20110046 (Version 1)
Quarter: 2021Q4

REPORT INFORMATION
  Report Type: Spontaneous
  Country: AU (occurrence: None)
  Receive Date: 20211124
  Receipt Date: 20211124
  Transmission Date: 20220304
  Serious: Yes (Hospitalization)
  Sender: FDA-Public Use
  Company Number: None

PATIENT
  Age: 3 Year
  Sex: Male

DRUGS (13)
  1. SILDENAFIL CITRATE [Suspect]
     Active Substance: SILDENAFIL CITRATE
     Indication: Congenital arterial malformation
     Dosage: FREQUENCY : 3 TIMES A DAY;?
     Dates: start: 20190511
  2. AMBRISENTAN [Concomitant]
     Active Substance: AMBRISENTAN
  3. CAROSPIR SUS [Concomitant]
  4. CHLOROTHIAZ [Concomitant]
  5. CLOPIDOGREL [Concomitant]
     Active Substance: CLOPIDOGREL BISULFATE
  6. FUROSEMIDE SOL [Concomitant]
  7. HYDROCHLOROTHIAZIDE [Concomitant]
     Active Substance: HYDROCHLOROTHIAZIDE
  8. LOSARTAN POTASSIUM [Concomitant]
     Active Substance: LOSARTAN POTASSIUM
  9. OMEPRAZOLE [Concomitant]
     Active Substance: OMEPRAZOLE
  10. PROPRANOLOL SOL [Concomitant]
  11. RAPAMUNE SOL [Concomitant]
  12. SILDENAFIL SUS [Concomitant]
  13. SILDENAFIL CITRATE [Concomitant]
     Active Substance: SILDENAFIL CITRATE

REACTIONS (2)
  - Rhinovirus infection [None]
  - Intestinal obstruction [None]

NARRATIVE: CASE EVENT DATE: 20211122
